FAERS Safety Report 17808783 (Version 1)
Quarter: 2020Q2

REPORT INFORMATION
  Report Type: Other
  Country: SA (occurrence: SA)
  Receive Date: 20200520
  Receipt Date: 20200520
  Transmission Date: 20200714
  Serious: Yes (Hospitalization, Other)
  Sender: FDA-Public Use
  Company Number: SA-INNOGENIX, LLC-2084018

PATIENT
  Age: 4 Month
  Sex: Male
  Weight: 2.2 kg

DRUGS (1)
  1. PROPRANOLOL HYDROCHLORIDE. [Suspect]
     Active Substance: PROPRANOLOL HYDROCHLORIDE
     Indication: INFANTILE HAEMANGIOMA
     Route: 048

REACTIONS (2)
  - Off label use [Unknown]
  - Hyperkalaemia [Recovered/Resolved]
